FAERS Safety Report 14247037 (Version 2)
Quarter: 2018Q1

REPORT INFORMATION
  Report Type: Report from Study
  Country: GB (occurrence: GB)
  Receive Date: 20171204
  Receipt Date: 20180214
  Transmission Date: 20180508
  Serious: Yes (Death, Hospitalization, Other)
  Sender: FDA-Public Use
  Company Number: GB-AMGEN-GBRSL2017178782

PATIENT
  Sex: Female

DRUGS (2)
  1. ARANESP [Suspect]
     Active Substance: DARBEPOETIN ALFA
     Indication: PRODUCT USED FOR UNKNOWN INDICATION
     Dosage: 40 MUG, UNK
     Route: 065
  2. ARANESP [Suspect]
     Active Substance: DARBEPOETIN ALFA
     Dosage: 20 MUG, UNK
     Route: 065

REACTIONS (8)
  - Crohn^s disease [Unknown]
  - Pneumonia [Unknown]
  - Transient ischaemic attack [Unknown]
  - Renal failure [Unknown]
  - Circulatory collapse [Unknown]
  - Death [Fatal]
  - Staphylococcal infection [Not Recovered/Not Resolved]
  - Cerebral disorder [Unknown]
